FAERS Safety Report 7793607-5 (Version None)
Quarter: 2011Q4

REPORT INFORMATION
  Report Type: 
  Country: None (occurrence: None)
  Receive Date: 20111003
  Receipt Date: 20110513
  Transmission Date: 20120403
  Serious: No
  Sender: FDA-Public Use
  Company Number: US-BAYER-2011-041482

PATIENT
  Age: 68 Year
  Sex: Male

DRUGS (3)
  1. LEVITRA [Suspect]
     Dosage: 5 MG, PRN
     Route: 048
  2. ANTIHYPERTENSIVES [Concomitant]
  3. LEVITRA [Suspect]
     Route: 048

REACTIONS (1)
  - DRUG INEFFECTIVE [None]
